FAERS Safety Report 16845376 (Version 2)
Quarter: 2019Q4

REPORT INFORMATION
  Report Type: Spontaneous
  Country: US (occurrence: US)
  Receive Date: 20190924
  Receipt Date: 20191004
  Transmission Date: 20200122
  Serious: Yes (Hospitalization)
  Sender: FDA-Public Use
  Company Number: US-GW PHARMA-201909USGW3423

PATIENT

DRUGS (1)
  1. EPIDIOLEX [Suspect]
     Active Substance: CANNABIDIOL
     Indication: SEIZURE
     Dosage: 130 MILLIGRAM, BID
     Route: 048
     Dates: start: 20190826

REACTIONS (2)
  - Seizure [Unknown]
  - Femur fracture [Unknown]

NARRATIVE: CASE EVENT DATE: 20190911
